FAERS Safety Report 23019638 (Version 1)
Quarter: 2023Q4

REPORT INFORMATION
  Report Type: Spontaneous
  Country: IN (occurrence: IN)
  Receive Date: 20231003
  Receipt Date: 20231003
  Transmission Date: 20240110
  Serious: Yes (Life-Threatening, Hospitalization, Other)
  Sender: FDA-Public Use
  Company Number: IN-MLMSERVICE-20230914-4545329-1

PATIENT
  Age: 49 Year
  Sex: Male

DRUGS (4)
  1. GEMCITABINE [Suspect]
     Active Substance: GEMCITABINE
     Indication: Pancreatic carcinoma
     Dosage: DOSE OF 1400 MG (ON DAYS 1, 8, AND 15 OF A 28-DAY CYCLE)
  2. GEMCITABINE [Suspect]
     Active Substance: GEMCITABINE
     Indication: Metastases to liver
  3. PACLITAXEL [Concomitant]
     Active Substance: PACLITAXEL
     Indication: Pancreatic carcinoma
     Dosage: DOSE OF 180 MG (ON DAYS 1, 8, AND 15 OF A 28-DAY CYCLE).
  4. PACLITAXEL [Concomitant]
     Active Substance: PACLITAXEL
     Indication: Metastases to liver

REACTIONS (1)
  - Renal-limited thrombotic microangiopathy [Recovering/Resolving]
